FAERS Safety Report 6243694-0 (Version None)
Quarter: 2009Q2

REPORT INFORMATION
  Report Type: 
  Country: None (occurrence: None)
  Receive Date: 20090624
  Receipt Date: 20090612
  Transmission Date: 20091009
  Serious: Yes (Death)
  Sender: FDA-Public Use
  Company Number: JP-PFIZER INC-2009228510

PATIENT
  Age: 48 Year

DRUGS (13)
  1. SILDENAFIL CITRATE [Suspect]
     Indication: PULMONARY ARTERIAL HYPERTENSION
     Dosage: 20 MG, 3X/DAY
     Route: 048
     Dates: start: 20080514
  2. TRACLEER [Concomitant]
     Route: 048
     Dates: start: 20060421
  3. DORNER [Concomitant]
     Route: 048
     Dates: start: 20070828
  4. ALFAROL [Concomitant]
     Route: 048
  5. DIGOSIN [Concomitant]
     Route: 048
  6. TAKEPRON [Concomitant]
     Route: 048
  7. PREDNISOLONE [Concomitant]
     Route: 048
  8. MUCOSTA [Concomitant]
     Route: 048
  9. WARFARIN [Concomitant]
     Route: 048
  10. EURODIN [Concomitant]
     Route: 048
  11. RHYTHMY [Concomitant]
     Route: 048
  12. LOXONIN [Concomitant]
     Route: 048
  13. LASIX [Concomitant]
     Route: 048

REACTIONS (1)
  - DEATH [None]
